FAERS Safety Report 13288225 (Version 1)
Quarter: 2017Q1

REPORT INFORMATION
  Report Type: Spontaneous
  Country: US (occurrence: US)
  Receive Date: 20170302
  Receipt Date: 20170302
  Transmission Date: 20170428
  Serious: No
  Sender: FDA-Public Use
  Company Number: US-ELI_LILLY_AND_COMPANY-US201702008003

PATIENT
  Sex: Female

DRUGS (1)
  1. TALTZ [Suspect]
     Active Substance: IXEKIZUMAB
     Indication: PSORIASIS
     Dosage: 1 DF, UNKNOWN
     Route: 065

REACTIONS (4)
  - Injection site erythema [Unknown]
  - Injection site swelling [Recovered/Resolved]
  - Rash erythematous [Unknown]
  - Sunburn [Recovered/Resolved]
